FAERS Safety Report 9504452 (Version 2)
Quarter: 2013Q3

REPORT INFORMATION
  Report Type: Report from Study
  Country: ES (occurrence: ES)
  Receive Date: 20130906
  Receipt Date: 20130912
  Transmission Date: 20140515
  Serious: Yes (Death)
  Sender: FDA-Public Use
  Company Number: ES-PFIZER INC-2013254231

PATIENT
  Age: 78 Year
  Sex: Male

DRUGS (1)
  1. TEMSIROLIMUS [Suspect]
     Indication: MANTLE CELL LYMPHOMA
     Dosage: 75 MG, WEEKLY (LOADING DOSE AND MAINTENANCE DOSE)
     Dates: start: 20121207, end: 20121214

REACTIONS (2)
  - Disease progression [Fatal]
  - Mantle cell lymphoma [Fatal]
